FAERS Safety Report 8379646-4 (Version None)
Quarter: 2012Q2

REPORT INFORMATION
  Report Type: 
  Country: None (occurrence: None)
  Receive Date: 20120523
  Receipt Date: 20120510
  Transmission Date: 20120825
  Serious: Yes (Other)
  Sender: FDA-Public Use
  Company Number: US-US-EMD SERONO, INC.-7132323

PATIENT
  Sex: Female
  Weight: 2 kg

DRUGS (1)
  1. REBIF [Suspect]

REACTIONS (3)
  - LOW BIRTH WEIGHT BABY [None]
  - EXPOSURE VIA FATHER [None]
  - PREMATURE BABY [None]
